FAERS Safety Report 16151821 (Version 2)
Quarter: 2019Q2

REPORT INFORMATION
  Report Type: Spontaneous
  Country: US (occurrence: US)
  Receive Date: 20190403
  Receipt Date: 20190515
  Transmission Date: 20190711
  Serious: No
  Sender: FDA-Public Use
  Company Number: US-GLAXOSMITHKLINE-US2019GSK054441

PATIENT
  Age: 55 Year
  Sex: Male
  Weight: 84.81 kg

DRUGS (1)
  1. NUCALA [Suspect]
     Active Substance: MEPOLIZUMAB
     Indication: PRODUCT USED FOR UNKNOWN INDICATION
     Dosage: UNK
     Route: 058
     Dates: start: 201612, end: 20190315

REACTIONS (5)
  - Asthma [Unknown]
  - Lip swelling [Unknown]
  - Urticaria [Unknown]
  - Forced expiratory volume decreased [Unknown]
  - Fractional exhaled nitric oxide increased [Unknown]

NARRATIVE: CASE EVENT DATE: 201901
